FAERS Safety Report 13737965 (Version 1)
Quarter: 2017Q3

REPORT INFORMATION
  Report Type: Spontaneous
  Country: TW (occurrence: TW)
  Receive Date: 20170710
  Receipt Date: 20170710
  Transmission Date: 20171127
  Serious: Yes (Hospitalization)
  Sender: FDA-Public Use
  Company Number: PHHY2009TW51867

PATIENT

DRUGS (4)
  1. ETUMINE [Suspect]
     Active Substance: CLOTHIAPINE
     Dosage: ONCE DAILY
     Route: 048
  2. HYDERGINE [Suspect]
     Active Substance: ERGOLOID MESYLATES
     Dosage: ONCE/DAY
  3. ETUMINE [Suspect]
     Active Substance: CLOTHIAPINE
     Dosage: TID
  4. HYDERGINE [Suspect]
     Active Substance: ERGOLOID MESYLATES
     Dosage: TID

REACTIONS (1)
  - Incorrect dose administered [Unknown]
